FAERS Safety Report 7703572-4 (Version None)
Quarter: 2011Q3

REPORT INFORMATION
  Report Type: 
  Country: None (occurrence: None)
  Receive Date: 20110823
  Receipt Date: 20110810
  Transmission Date: 20111222
  Serious: Yes (Hospitalization, Other)
  Sender: FDA-Public Use
  Company Number: PHEH2011US00870

PATIENT
  Sex: Male
  Weight: 90 kg

DRUGS (18)
  1. EXJADE [Suspect]
     Indication: BLOOD DISORDER
     Dosage: 1000 MG, DAILY
     Route: 048
     Dates: start: 20080320, end: 20110804
  2. FLEXERIL [Concomitant]
     Dosage: UNK UKN, UNK
  3. EXJADE [Suspect]
     Indication: IRON OVERLOAD
  4. COLESTIPOL HYDROCHLORIDE [Concomitant]
     Dosage: 2 G, BID
  5. PRILOSEC [Concomitant]
     Dosage: UNK UKN, UNK
  6. OXYCODONE HCL [Concomitant]
     Dosage: UNK UKN, UNK
  7. COLCHICINE [Concomitant]
     Dosage: UNK UKN, UNK
  8. ZEGERID [Concomitant]
     Dosage: 1.1 G, UNK
  9. DICYCLOMINE [Concomitant]
     Dosage: 20 MG, QID
  10. JAK2 [Concomitant]
     Dosage: UNK UKN, UNK
  11. ASPIRIN [Concomitant]
     Dosage: 81 MG, UNK
  12. BISOPROLOL FUMARATE AND HYDROCHLOROTHIAZIDE [Concomitant]
     Dosage: 1 DF, UNK
  13. PLAVIX [Concomitant]
     Dosage: UNK UKN, UNK
  14. ALLOPURINOL [Concomitant]
     Dosage: UNK UKN, UNK
  15. ZEGERID [Concomitant]
     Dosage: 40 MG, UNK
  16. LASIX [Concomitant]
     Dosage: 40 MG, PRN
  17. NAPROXEN SODIUM [Concomitant]
     Dosage: UNK UKN, UNK
  18. BENTYL [Concomitant]
     Dosage: UNK UKN, UNK

REACTIONS (10)
  - HYPERKALAEMIA [None]
  - PROSTATIC OBSTRUCTION [None]
  - MUSCULAR WEAKNESS [None]
  - BLOOD URINE PRESENT [None]
  - BLOOD POTASSIUM INCREASED [None]
  - MUSCLE SPASMS [None]
  - RENAL FAILURE ACUTE [None]
  - CONCOMITANT DISEASE PROGRESSION [None]
  - ELECTROCARDIOGRAM ABNORMAL [None]
  - PROTEIN URINE [None]
